FAERS Safety Report 5317103-X (Version None)
Quarter: 2007Q2

REPORT INFORMATION
  Report Type: 
  Country: None (occurrence: None)
  Receive Date: 20070504
  Receipt Date: 20070423
  Transmission Date: 20071010
  Serious: Yes (Congenital Anomaly)
  Sender: FDA-Public Use
  Company Number: US-ROCHE-494618

PATIENT
  Sex: Female

DRUGS (3)
  1. INVIRASE [Suspect]
     Indication: DRUG USE FOR UNKNOWN INDICATION
     Dates: start: 20060811, end: 20061011
  2. COMBIVIR [Concomitant]
     Dosage: 2 TABLETS DAILY NOS
     Dates: start: 20060804
  3. NORVIR [Concomitant]
     Dates: start: 20060811, end: 20061011

REACTIONS (1)
  - POLYDACTYLY [None]
